FAERS Safety Report 14158400 (Version 1)
Quarter: 2017Q4

REPORT INFORMATION
  Report Type: Spontaneous
  Country: US (occurrence: US)
  Receive Date: 20171106
  Receipt Date: 20171106
  Transmission Date: 20180321
  Serious: No
  Sender: FDA-Public Use
  Company Number: US-B.I. PHARMACEUTICALS,INC./RIDGEFIELD-2017-BI-058764

PATIENT
  Age: 69 Year
  Sex: Male

DRUGS (1)
  1. GILOTRIF [Suspect]
     Active Substance: AFATINIB
     Indication: OESOPHAGEAL CARCINOMA
     Dosage: ONCE A DAY;  FORM STRENGTH: 40 MG; FORMULATION: TABLET? ADMINISTRATION CORRECT? NR(NOT REPORTED) ?AC
     Route: 048
     Dates: start: 20170817

REACTIONS (2)
  - Drug ineffective [Unknown]
  - Off label use [Unknown]

NARRATIVE: CASE EVENT DATE: 20170817
